FAERS Safety Report 6710533-0 (Version None)
Quarter: 2010Q2

REPORT INFORMATION
  Report Type: 
  Country: None (occurrence: None)
  Receive Date: 20100504
  Receipt Date: 20100426
  Transmission Date: 20101027
  Serious: Yes (Hospitalization)
  Sender: FDA-Public Use
  Company Number: US-GILEAD-2010-0028749

PATIENT
  Sex: Male

DRUGS (11)
  1. LETAIRIS [Suspect]
     Indication: PULMONARY ARTERIAL HYPERTENSION
     Route: 048
  2. LASIX [Concomitant]
  3. METOPROLOL [Concomitant]
  4. TAZTIA XT [Concomitant]
  5. BENICAR [Concomitant]
  6. NITROGLYCERIN [Concomitant]
  7. PROAIR HFA [Concomitant]
  8. CLONAZEPAM [Concomitant]
  9. FLOMAX [Concomitant]
  10. CELEBREX [Concomitant]
  11. CEREFOLIN [Concomitant]

REACTIONS (1)
  - LUNG INFECTION [None]
